FAERS Safety Report 7272505-X (Version None)
Quarter: 2011Q1

REPORT INFORMATION
  Report Type: 
  Country: None (occurrence: None)
  Receive Date: 20110203
  Receipt Date: 20110125
  Transmission Date: 20110831
  Serious: Yes (Hospitalization)
  Sender: FDA-Public Use
  Company Number: IT-ROCHE-755373

PATIENT
  Sex: Female
  Weight: 85 kg

DRUGS (6)
  1. IRINOTECAN HCL [Suspect]
     Indication: GLIOBLASTOMA
     Route: 042
     Dates: start: 20101217, end: 20110114
  2. LEVETIRACETAM [Concomitant]
     Route: 048
     Dates: start: 20101214
  3. BEVACIZUMAB [Suspect]
     Indication: GLIOBLASTOMA
     Route: 042
     Dates: start: 20101217, end: 20110114
  4. DEXAMETHASONE [Concomitant]
     Route: 030
     Dates: start: 20101201
  5. DEXAMETHASONE [Concomitant]
     Indication: GLIOBLASTOMA
     Route: 030
     Dates: start: 20101015, end: 20101130
  6. OMEPRAZOLE [Concomitant]
     Indication: GLIOBLASTOMA
     Dosage: ROUTE: PER OS
     Route: 048
     Dates: start: 20101015

REACTIONS (2)
  - STOMATITIS [None]
  - ERYTHEMA [None]
